FAERS Safety Report 5050643-X (Version None)
Quarter: 2006Q3

REPORT INFORMATION
  Report Type: 
  Country: None (occurrence: None)
  Receive Date: 20060710
  Receipt Date: 20060704
  Transmission Date: 20061208
  Serious: Yes (Other)
  Sender: FDA-Public Use
  Company Number: 2006-07-0049

PATIENT
  Age: 39 Year
  Sex: Female

DRUGS (1)
  1. TEMODAL [Suspect]
     Indication: GLIOBLASTOMA

REACTIONS (3)
  - HYPERPARATHYROIDISM PRIMARY [None]
  - MINERAL DEFICIENCY [None]
  - SPINAL FRACTURE [None]
